FAERS Safety Report 9735777 (Version 1)
Quarter: 2013Q4

REPORT INFORMATION
  Report Type: Spontaneous
  Country: US (occurrence: US)
  Receive Date: 20131206
  Receipt Date: 20131206
  Transmission Date: 20140711
  Serious: No
  Sender: FDA-Public Use
  Company Number: US-GILEAD-2009-0022995

PATIENT
  Sex: Male
  Weight: 79.38 kg

DRUGS (11)
  1. LETAIRIS [Suspect]
     Indication: PULMONARY ARTERIAL HYPERTENSION
     Route: 048
     Dates: start: 20090422
  2. REVATIO [Concomitant]
  3. WARFARIN [Concomitant]
  4. COLCHICINE [Concomitant]
  5. ALLOPURINOL [Concomitant]
  6. ALPRAZOLAM [Concomitant]
  7. TYLENOL [Concomitant]
  8. AMLODIPINE [Concomitant]
  9. HYDROCHLOROTHIAZIDE [Concomitant]
  10. GABAPENTIN [Concomitant]
  11. CARTIA XT [Concomitant]

REACTIONS (2)
  - Nausea [Unknown]
  - Abdominal pain upper [Unknown]
